FAERS Safety Report 8231345-5 (Version None)
Quarter: 2012Q1

REPORT INFORMATION
  Report Type: 
  Country: None (occurrence: None)
  Receive Date: 20120323
  Receipt Date: 20120320
  Transmission Date: 20120608
  Serious: No
  Sender: FDA-Public Use
  Company Number: US-PFIZER INC-2012073695

PATIENT
  Sex: Female
  Weight: 76.19 kg

DRUGS (4)
  1. CHANTIX [Suspect]
     Indication: SMOKING CESSATION THERAPY
     Dosage: 0.5 MG, DAILY
     Dates: start: 20111201, end: 20111201
  2. CHANTIX [Suspect]
     Dosage: 0.5 MG, UNK
     Dates: start: 20111201, end: 20111201
  3. XANAX [Concomitant]
     Dosage: 10 MG, 2X/DAY
  4. NADOLOL [Concomitant]
     Dosage: 40 MG, 2X/DAY

REACTIONS (2)
  - BLOOD CHOLESTEROL INCREASED [None]
  - EMOTIONAL DISORDER [None]
